FAERS Safety Report 21285529 (Version 1)
Quarter: 2022Q3

REPORT INFORMATION
  Report Type: Spontaneous
  Country: FR (occurrence: FR)
  Receive Date: 20220902
  Receipt Date: 20220902
  Transmission Date: 20221027
  Serious: Yes (Other)
  Sender: FDA-Public Use
  Company Number: FR-UCBSA-2022051299

PATIENT
  Sex: Female

DRUGS (7)
  1. CIMZIA [Suspect]
     Active Substance: CERTOLIZUMAB PEGOL
     Indication: Hidradenitis
     Dosage: 400 MILLIGRAM, EV 2 WEEKS(QOW)
     Dates: start: 20201008, end: 20210406
  2. ESOMEPRAZOLE [Suspect]
     Active Substance: ESOMEPRAZOLE
     Indication: Duodenogastric reflux
     Dosage: 15 MILLIGRAM, ONCE DAILY (QD)
  3. ENOXAPARIN SODIUM [Suspect]
     Active Substance: ENOXAPARIN SODIUM
     Indication: Thrombosis prophylaxis
     Dosage: 40 MILLIGRAM, ONCE DAILY (QD)
  4. ASPIRIN [Suspect]
     Active Substance: ASPIRIN
     Indication: Hidradenitis
     Dosage: 100 MILLIGRAM, ONCE DAILY (QD)
     Dates: start: 20201008
  5. PREDNISONE [Suspect]
     Active Substance: PREDNISONE
     Indication: Product used for unknown indication
  6. PREDNISONE [Suspect]
     Active Substance: PREDNISONE
     Indication: Hidradenitis
     Dosage: 20 MILLIGRAM, ONCE DAILY (QD)
     Dates: start: 20201008, end: 20210424
  7. COLCHICINE [Suspect]
     Active Substance: COLCHICINE
     Indication: Hidradenitis
     Dosage: 1 MILLIGRAM, ONCE DAILY (QD)

REACTIONS (2)
  - Premature delivery [Recovered/Resolved]
  - Maternal exposure during pregnancy [Unknown]

NARRATIVE: CASE EVENT DATE: 20201008
